FAERS Safety Report 7993636-2 (Version None)
Quarter: 2011Q4

REPORT INFORMATION
  Report Type: 
  Country: None (occurrence: None)
  Receive Date: 20111219
  Receipt Date: 20111209
  Transmission Date: 20120403
  Serious: Yes (Other)
  Sender: FDA-Public Use
  Company Number: US-ASTRAZENECA-2011SE68645

PATIENT
  Age: 82 Year
  Sex: Female
  Weight: 49.9 kg

DRUGS (24)
  1. ASPIRIN [Concomitant]
     Indication: PLATELET AGGREGATION INHIBITION
     Route: 048
  2. MULTI-VITAMINS [Concomitant]
  3. VITAMIN D [Concomitant]
  4. ALLEGRA [Concomitant]
     Indication: SEASONAL ALLERGY
  5. MELOXICAM [Concomitant]
     Indication: ARTHRITIS
     Dosage: 1-2 TABS DAILY
  6. GLUCOSAMINE [Concomitant]
  7. EYEDROPS [Concomitant]
     Indication: GLAUCOMA
  8. VITAMIN E [Concomitant]
  9. ALLEGRA [Concomitant]
     Indication: HYPERSENSITIVITY
  10. RANEXA [Concomitant]
     Indication: CARDIAC DISORDER
  11. BLACKSEED OIL [Concomitant]
  12. PLAVIX [Concomitant]
     Indication: PLATELET AGGREGATION INHIBITION
     Route: 048
  13. MELOXICAM [Concomitant]
     Indication: BACK PAIN
     Dosage: 1-2 TABS DAILY
  14. CETIRIZINE [Concomitant]
     Indication: HYPERSENSITIVITY
  15. FISHOIL [Concomitant]
  16. DETROL LA [Concomitant]
     Indication: HYPERTONIC BLADDER
     Route: 048
  17. GABAPENTIN [Concomitant]
     Indication: NEUROPATHY PERIPHERAL
     Route: 048
  18. CALCIUM [Concomitant]
  19. NEXIUM [Suspect]
     Indication: GASTROOESOPHAGEAL REFLUX DISEASE
     Route: 048
     Dates: start: 20040101
  20. NEXIUM [Suspect]
     Indication: DYSPEPSIA
     Route: 048
     Dates: start: 20040101
  21. BIOTIN [Concomitant]
     Indication: HAIR DISORDER
  22. HYOSCYAMINE [Concomitant]
     Indication: DIARRHOEA
     Route: 048
  23. VITAMIN C [Concomitant]
  24. CETIRIZINE [Concomitant]
     Indication: SEASONAL ALLERGY

REACTIONS (5)
  - DRUG INEFFECTIVE [None]
  - GASTROOESOPHAGEAL REFLUX DISEASE [None]
  - VISUAL IMPAIRMENT [None]
  - MYOCARDIAL INFARCTION [None]
  - DYSPEPSIA [None]
